FAERS Safety Report 17315742 (Version 2)
Quarter: 2020Q1

REPORT INFORMATION
  Report Type: Spontaneous
  Country: US (occurrence: US)
  Receive Date: 20200124
  Receipt Date: 20200218
  Transmission Date: 20200409
  Serious: Yes (Hospitalization, Other)
  Sender: FDA-Public Use
  Company Number: US-CATALYST PHARMACEUTICALS, INC-2020CAT00018

PATIENT
  Age: 79 Year
  Sex: Male
  Weight: 82.54 kg

DRUGS (18)
  1. GLIPIZIDE. [Concomitant]
     Active Substance: GLIPIZIDE
  2. FIRDAPSE [Suspect]
     Active Substance: AMIFAMPRIDINE
     Indication: MYASTHENIC SYNDROME
     Dosage: UNK (TITRATED DOSE)
     Route: 048
     Dates: start: 201912
  3. HIGH DOSE STEROIDS [Suspect]
     Active Substance: UNSPECIFIED INGREDIENT
     Dosage: UNK
     Route: 042
     Dates: start: 202001
  4. FIRDAPSE [Suspect]
     Active Substance: AMIFAMPRIDINE
     Dosage: 15 MG, 3X/DAY
     Route: 048
  5. PLAVIX [Concomitant]
     Active Substance: CLOPIDOGREL BISULFATE
  6. RANOLAZINE. [Concomitant]
     Active Substance: RANOLAZINE
  7. CALCIUM PLUS D3 [Concomitant]
  8. ANORO ELLIPTA [Concomitant]
     Active Substance: UMECLIDINIUM BROMIDE\VILANTEROL TRIFENATATE
  9. UNSPECIFIED ANTIHISTAMINE [Concomitant]
     Active Substance: ANTIHISTAMINES NOS
  10. PREDNISONE. [Concomitant]
     Active Substance: PREDNISONE
  11. MAGNESIUM [Concomitant]
     Active Substance: MAGNESIUM
  12. OMEPRAZOLE. [Concomitant]
     Active Substance: OMEPRAZOLE
  13. ZETIA [Concomitant]
     Active Substance: EZETIMIBE
  14. PYRIDIUM [Suspect]
     Active Substance: PHENAZOPYRIDINE
     Indication: URINARY TRACT INFECTION
     Dosage: UNK
     Route: 048
     Dates: start: 202002
  15. BABY ASPIRIN [Concomitant]
     Active Substance: ASPIRIN
  16. FLUOXETINE [Concomitant]
     Active Substance: FLUOXETINE HYDROCHLORIDE
  17. GABAPENTIN. [Concomitant]
     Active Substance: GABAPENTIN
  18. POTASSIUM [Concomitant]
     Active Substance: POTASSIUM

REACTIONS (16)
  - Anaphylactic shock [Recovered/Resolved with Sequelae]
  - Heart rate increased [Unknown]
  - Chromaturia [Not Recovered/Not Resolved]
  - Vasospasm [Unknown]
  - Performance status decreased [Not Recovered/Not Resolved]
  - Transfusion-related acute lung injury [Unknown]
  - Adrenal insufficiency [Not Recovered/Not Resolved]
  - Pulmonary oedema [Unknown]
  - Hypoglycaemia [Not Recovered/Not Resolved]
  - Angina pectoris [Not Recovered/Not Resolved]
  - Urine output decreased [Unknown]
  - Hypotension [Not Recovered/Not Resolved]
  - Device related infection [Unknown]
  - Urinary tract infection [Not Recovered/Not Resolved]
  - Pneumonia [Unknown]
  - Pyrexia [Unknown]

NARRATIVE: CASE EVENT DATE: 20191228
